FAERS Safety Report 9384068 (Version 1)
Quarter: 2013Q3

REPORT INFORMATION
  Report Type: Spontaneous
  Country: US (occurrence: US)
  Receive Date: 20130705
  Receipt Date: 20130705
  Transmission Date: 20140515
  Serious: No
  Sender: FDA-Public Use
  Company Number: US-009507513-1306USA014032

PATIENT
  Sex: 0

DRUGS (3)
  1. VICTRELIS [Suspect]
     Dosage: 4 CAPSULES, TID
     Route: 048
     Dates: start: 20130617
  2. RIBAPAK [Suspect]
     Dosage: UNK
     Dates: start: 20130617
  3. PEGASYS [Suspect]
     Dosage: UNK
     Dates: start: 20130617

REACTIONS (2)
  - Inappropriate schedule of drug administration [Unknown]
  - No adverse event [Unknown]
